FAERS Safety Report 9672188 (Version 1)
Quarter: 2013Q4

REPORT INFORMATION
  Report Type: Report from Study
  Country: MX (occurrence: MX)
  Receive Date: 20131106
  Receipt Date: 20131106
  Transmission Date: 20140711
  Serious: Yes (Hospitalization)
  Sender: FDA-Public Use
  Company Number: MX-BRISTOL-MYERS SQUIBB COMPANY-19703958

PATIENT
  Age: 51 Year
  Sex: Female

DRUGS (4)
  1. ABATACEPT SUBQ INJECTION 125MG/ML [Suspect]
     Indication: RHEUMATOID ARTHRITIS
     Dosage: INTER: 15JUL2013
     Route: 058
     Dates: start: 200902
  2. METHOTREXATE [Suspect]
     Dosage: INTER: JUL2013
     Dates: start: 200806
  3. PREDNISONE [Concomitant]
     Dates: end: 201307
  4. FOLIC ACID [Concomitant]
     Dates: end: 201307

REACTIONS (1)
  - Appendicitis [Recovered/Resolved]
